FAERS Safety Report 18479054 (Version 1)
Quarter: 2020Q4

REPORT INFORMATION
  Report Type: Spontaneous
  Country: GB (occurrence: GB)
  Receive Date: 20201109
  Receipt Date: 20201109
  Transmission Date: 20210114
  Serious: Yes (Other)
  Sender: FDA-Public Use
  Company Number: GB-ROCHE-2707058

PATIENT
  Sex: Female

DRUGS (2)
  1. DIAZEPAM. [Suspect]
     Active Substance: DIAZEPAM
     Indication: ANXIETY
     Route: 065
  2. UTROGESTAN [Suspect]
     Active Substance: PROGESTERONE
     Indication: HORMONE REPLACEMENT THERAPY
     Route: 048

REACTIONS (6)
  - Uterine haemorrhage [Unknown]
  - Drug interaction [Unknown]
  - Intentional self-injury [Unknown]
  - Anger [Unknown]
  - Withdrawal syndrome [Unknown]
  - Aggression [Unknown]
